FAERS Safety Report 7063609-5 (Version None)
Quarter: 2010Q4

REPORT INFORMATION
  Report Type: 
  Country: None (occurrence: None)
  Receive Date: 20101026
  Receipt Date: 20100923
  Transmission Date: 20110411
  Serious: No
  Sender: FDA-Public Use
  Company Number: US-ABBOTT-10P-163-0663295-00

PATIENT
  Sex: Female

DRUGS (1)
  1. LUPRON [Suspect]
     Indication: PRODUCT USED FOR UNKNOWN INDICATION
     Dates: start: 20100807

REACTIONS (9)
  - ABDOMINAL DISTENSION [None]
  - ANGER [None]
  - DISTURBANCE IN ATTENTION [None]
  - DYSMENORRHOEA [None]
  - HOT FLUSH [None]
  - MENSTRUAL DISORDER [None]
  - NAUSEA [None]
  - PAIN [None]
  - PREMENSTRUAL SYNDROME [None]
